FAERS Safety Report 10039975 (Version 1)
Quarter: 2014Q1

REPORT INFORMATION
  Report Type: Report from Study
  Country: US (occurrence: US)
  Receive Date: 20140326
  Receipt Date: 20140326
  Transmission Date: 20141002
  Serious: Yes (Hospitalization)
  Sender: FDA-Public Use
  Company Number: US-BAXTER-2014BAX014727

PATIENT
  Age: 23 Year
  Sex: Male

DRUGS (2)
  1. FEIBA NF [Suspect]
     Indication: FACTOR VIII DEFICIENCY
     Dosage: +/-10%
     Route: 042
     Dates: start: 1997
  2. NOVOSEVEN [Suspect]
     Indication: HAEMORRHAGE
     Dosage: +/-10%
     Route: 042

REACTIONS (1)
  - Haemarthrosis [Recovered/Resolved]
